FAERS Safety Report 8431534-0 (Version None)
Quarter: 2012Q2

REPORT INFORMATION
  Report Type: 
  Country: None (occurrence: None)
  Receive Date: 20120607
  Receipt Date: 20120607
  Transmission Date: 20120825
  Serious: No
  Sender: FDA-Public Use
  Company Number: None

PATIENT
  Age: 74 Year
  Sex: Female
  Weight: 92.9874 kg

DRUGS (1)
  1. PRADAXA [Suspect]
     Indication: ATRIAL FIBRILLATION
     Dosage: 150 MG 2 TIMES DAILY

REACTIONS (7)
  - MIDDLE INSOMNIA [None]
  - ARTHROPATHY [None]
  - GAIT DISTURBANCE [None]
  - PAIN [None]
  - FATIGUE [None]
  - WEIGHT INCREASED [None]
  - DYSSTASIA [None]
